FAERS Safety Report 10043353 (Version 1)
Quarter: 2014Q1

REPORT INFORMATION
  Report Type: Spontaneous
  Country: US (occurrence: None)
  Receive Date: 20140327
  Receipt Date: 20140327
  Transmission Date: 20141002
  Serious: Yes (Death, Hospitalization)
  Sender: FDA-Public Use
  Company Number: None

PATIENT
  Age: 94 Year
  Sex: Female
  Weight: 52 kg

DRUGS (14)
  1. WARFARIN [Suspect]
     Indication: DEEP VEIN THROMBOSIS
  2. WARFARIN [Suspect]
     Indication: PULMONARY EMBOLISM
  3. KLOR CON M [Concomitant]
  4. SYNTHROID [Concomitant]
  5. LISINOPRIL [Concomitant]
  6. LOPRESSOR [Concomitant]
  7. WARFARIN [Concomitant]
  8. ASPIRIN [Concomitant]
  9. FOSAMAX [Concomitant]
  10. PRILOSEC [Concomitant]
  11. NEPHROCAPS [Concomitant]
  12. FISH OIL [Concomitant]
  13. LASIX [Concomitant]
  14. PRILOSEC [Concomitant]

REACTIONS (3)
  - International normalised ratio increased [None]
  - Excoriation [None]
  - Rectal haemorrhage [None]
